FAERS Safety Report 12194382 (Version 1)
Quarter: 2016Q1

REPORT INFORMATION
  Report Type: Spontaneous
  Country: CN (occurrence: CN)
  Receive Date: 20160321
  Receipt Date: 20160321
  Transmission Date: 20160526
  Serious: Yes (Other)
  Sender: FDA-Public Use
  Company Number: ALCN2016CN001962

PATIENT
  Age: 9 Year
  Sex: Male

DRUGS (2)
  1. TROPICAMIDUM [Suspect]
     Active Substance: TROPICAMIDE
     Indication: MYDRIASIS
     Dosage: ADMINISTERED 3 TIMES
     Route: 047
     Dates: start: 20160313, end: 20160313
  2. CYCLOGYL [Suspect]
     Active Substance: CYCLOPENTOLATE HYDROCHLORIDE
     Indication: MYDRIASIS
     Dosage: ADMINISTERED 3 TIMES
     Route: 047
     Dates: start: 20160313, end: 20160313

REACTIONS (7)
  - Dry mouth [Recovering/Resolving]
  - Loss of consciousness [Recovering/Resolving]
  - Heart rate decreased [Recovering/Resolving]
  - Erythema [Recovering/Resolving]
  - Gait disturbance [Recovering/Resolving]
  - Mydriasis [Recovering/Resolving]
  - Somnolence [Recovering/Resolving]

NARRATIVE: CASE EVENT DATE: 20160313
